FAERS Safety Report 14498530 (Version 1)
Quarter: 2018Q1

REPORT INFORMATION
  Report Type: Spontaneous
  Country: CA (occurrence: CA)
  Receive Date: 20180207
  Receipt Date: 20180207
  Transmission Date: 20180509
  Serious: Yes (Hospitalization)
  Sender: FDA-Public Use
  Company Number: CA-PFIZER INC-2018047450

PATIENT
  Age: 28 Year
  Sex: Female
  Weight: 58 kg

DRUGS (2)
  1. CIPRALEX [Concomitant]
     Active Substance: ESCITALOPRAM OXALATE
     Dosage: 10 MG, UNK
     Route: 048
  2. PRISTIQ EXTENDED-RELEASE [Suspect]
     Active Substance: DESVENLAFAXINE SUCCINATE
     Indication: MAJOR DEPRESSION
     Dosage: 50 MG, 1X/DAY (FOR 5 DAYS)
     Route: 048

REACTIONS (12)
  - Crying [Recovered/Resolved]
  - Dissociation [Recovered/Resolved]
  - Hallucination, auditory [Recovered/Resolved]
  - Screaming [Recovered/Resolved]
  - Feeling abnormal [Recovered/Resolved]
  - Psychomotor skills impaired [Recovered/Resolved]
  - Decreased appetite [Recovered/Resolved]
  - Flight of ideas [Recovered/Resolved]
  - Affect lability [Recovered/Resolved]
  - Loss of personal independence in daily activities [Recovered/Resolved]
  - Inappropriate affect [Recovered/Resolved]
  - Psychotic disorder [Recovered/Resolved]
